FAERS Safety Report 26206329 (Version 1)
Quarter: 2025Q4

REPORT INFORMATION
  Report Type: Spontaneous
  Country: BR (occurrence: BR)
  Receive Date: 20251229
  Receipt Date: 20251229
  Transmission Date: 20260117
  Serious: Yes (Other)
  Sender: SANDOZ
  Company Number: BR-SANDOZ-SDZ2025BR069533

PATIENT
  Sex: Female

DRUGS (10)
  1. SIMVASTATIN [Suspect]
     Active Substance: SIMVASTATIN
     Indication: Product used for unknown indication
     Dosage: 3 TABLET 1 TIME A DAY
     Dates: start: 202304
  2. SIMVASTATIN [Suspect]
     Active Substance: SIMVASTATIN
     Dosage: 2 TABLETS ONCE A DAY
  3. SIMVASTATIN [Suspect]
     Active Substance: SIMVASTATIN
     Dosage: 1 TABLET A DAY, FOR 21 DAYS,
  4. ATENOLOL [Suspect]
     Active Substance: ATENOLOL
     Indication: Product used for unknown indication
     Dosage: 50MG AFTER DINNER
  5. ANASTROZOLE [Suspect]
     Active Substance: ANASTROZOLE
     Indication: Product used for unknown indication
     Dosage: UNK
  6. LEVOTHYROXINE SODIUM [Suspect]
     Active Substance: LEVOTHYROXINE SODIUM
     Indication: Product used for unknown indication
     Dosage: 100 MG, QD
  7. GABAPENTIN [Suspect]
     Active Substance: GABAPENTIN
     Indication: Prophylaxis
     Dosage: 300MG, 1 TABLET IN THE EVENING
  8. VITAMIN D [Suspect]
     Active Substance: VITAMIN D NOS
     Indication: Product used for unknown indication
     Dosage: VITAMIN D MDK, 2 TABLETS, 1 MORNING AND 1 EVENING
  9. RIBOCICLIB [Suspect]
     Active Substance: RIBOCICLIB
     Indication: Breast cancer metastatic
     Dosage: 2 DF
  10. RIBOCICLIB [Suspect]
     Active Substance: RIBOCICLIB
     Dosage: 1 DF

REACTIONS (19)
  - Pneumonitis [Unknown]
  - Immunodeficiency [Unknown]
  - Multiple sclerosis [Unknown]
  - Faecaloma [Unknown]
  - Skin hyperpigmentation [Unknown]
  - Tooth disorder [Unknown]
  - Tooth infection [Unknown]
  - Somnolence [Unknown]
  - Nodule [Unknown]
  - Spondylitis [Unknown]
  - Liver disorder [Unknown]
  - Diverticulum intestinal [Unknown]
  - Cholelithiasis [Unknown]
  - Radiation injury [Unknown]
  - Wound [Recovering/Resolving]
  - Pain [Unknown]
  - Somnolence [Unknown]
  - Sluggishness [Unknown]
  - Arthralgia [Unknown]
